FAERS Safety Report 6493924-5 (Version None)
Quarter: 2009Q4

REPORT INFORMATION
  Report Type: 
  Country: None (occurrence: None)
  Receive Date: 20091214
  Receipt Date: 20081124
  Transmission Date: 20100525
  Serious: No
  Sender: FDA-Public Use
  Company Number: US-BRISTOL-MYERS SQUIBB COMPANY-14418628

PATIENT
  Age: 3 Decade
  Sex: Male
  Weight: 93 kg

DRUGS (3)
  1. ABILIFY [Suspect]
     Indication: SCHIZOPHRENIA, PARANOID TYPE
     Dates: start: 20060601
  2. KETOCONAZOLE [Concomitant]
  3. LAXATIVES [Concomitant]

REACTIONS (1)
  - HEPATIC ENZYME INCREASED [None]
